FAERS Safety Report 11839268 (Version 1)
Quarter: 2015Q4

REPORT INFORMATION
  Report Type: Spontaneous
  Country: US (occurrence: US)
  Receive Date: 20151216
  Receipt Date: 20151216
  Transmission Date: 20160305
  Serious: No
  Sender: FDA-Public Use
  Company Number: US-TEVA-527750USA

PATIENT
  Age: 72 Year
  Sex: Female
  Weight: 93.98 kg

DRUGS (5)
  1. ENABLEX [Concomitant]
     Active Substance: DARIFENACIN\DARIFENACIN HYDROBROMIDE
  2. OXYBUTYNIN [Suspect]
     Active Substance: OXYBUTYNIN
     Route: 065
     Dates: start: 201007
  3. ATENOLOL. [Concomitant]
     Active Substance: ATENOLOL
     Dosage: 50 MILLIGRAM DAILY; AT NIGHT
  4. LISINOPRIL AND HYDROCHLOROTHIAZIDE [Concomitant]
     Active Substance: HYDROCHLOROTHIAZIDE\LISINOPRIL
     Dosage: 20-12.5 IN THE MORNING
  5. MYRBETRIQ [Suspect]
     Active Substance: MIRABEGRON
     Indication: BLADDER DISORDER
     Dosage: 25 MILLIGRAM DAILY;
     Route: 048
     Dates: end: 201311

REACTIONS (2)
  - Dizziness [Unknown]
  - Drug effect variable [Unknown]

NARRATIVE: CASE EVENT DATE: 201007
